FAERS Safety Report 7362367 (Version 3)
Quarter: 2012Q4

REPORT INFORMATION
  Report Type: Spontaneous
  Country: JP (occurrence: None)
  Receive Date: 20100406
  Receipt Date: 20121220
  Transmission Date: 20130627
  Serious: Yes (Death)
  Sender: FDA-Public Use
  Company Number: 2004JP000447

PATIENT
  Age: 59 Year
  Sex: Female
  Weight: 56 kg

DRUGS (8)
  1. TACROLIMUS [Suspect]
     Indication: MYASTHENIA GRAVIS
     Dosage: 3.00 MG, ORAL
     Route: 048
     Dates: start: 20031110, end: 20100203
  2. PREDNISOLONE [Suspect]
     Indication: MYASTHENIA GRAVIS
     Dosage: 13 MG, QOD, ORAL
     Route: 048
     Dates: start: 2009, end: 20100203
  3. ATARAX [Concomitant]
  4. OMEPRAZOLE [Concomitant]
  5. CINAL (RIBOFLAVIN) [Concomitant]
  6. MUCOSTA (REBAMIPIDE) [Concomitant]
  7. MAGNESIUM OXIDE (MAGNESIUM OXIDE) [Concomitant]
  8. BENET (RISEDRONAT SODIUM) [Concomitant]

REACTIONS (6)
  - ATYPICAL MYCOBACTERIAL INFECTION [None]
  - PNEUMONIA [None]
  - DIABETES MELLITUS [None]
  - BLOOD PRESSURE DIASTOLIC DECREASED [None]
  - RESPIRATORY FAILURE [None]
  - OPPORTUNISTIC INFECTION [None]
